FAERS Safety Report 10219401 (Version 1)
Quarter: 2014Q2

REPORT INFORMATION
  Report Type: Spontaneous
  Country: US (occurrence: None)
  Receive Date: 20140604
  Receipt Date: 20140604
  Transmission Date: 20141212
  Serious: No
  Sender: FDA-Public Use
  Company Number: None

PATIENT
  Age: 46 Year
  Sex: Male
  Weight: 113.4 kg

DRUGS (1)
  1. LEVAQUIN [Suspect]
     Indication: ATYPICAL PNEUMONIA
     Dosage: 1 PILL, ONCE DAILY, TAKEN BY MOUTH
     Route: 048
     Dates: start: 20140512, end: 20140515

REACTIONS (1)
  - Tendonitis [None]
